FAERS Safety Report 4850718-1 (Version None)
Quarter: 2005Q4

REPORT INFORMATION
  Report Type: 
  Country: None (occurrence: None)
  Receive Date: 20051208
  Receipt Date: 20051118
  Transmission Date: 20060501
  Serious: Yes (Hospitalization)
  Sender: FDA-Public Use
  Company Number: US200511002397

PATIENT
  Age: 12 Year

DRUGS (1)
  1. STRATTERA [Suspect]
     Dosage: UNK MG

REACTIONS (2)
  - HEPATIC HAEMORRHAGE [None]
  - LIVER FUNCTION TEST ABNORMAL [None]
